FAERS Safety Report 6125509-4 (Version None)
Quarter: 2009Q1

REPORT INFORMATION
  Report Type: 
  Country: None (occurrence: None)
  Receive Date: 20090320
  Receipt Date: 20090217
  Transmission Date: 20090719
  Serious: No
  Sender: FDA-Public Use
  Company Number: US-BAYER-200839047NA

PATIENT
  Age: 26 Year
  Sex: Female
  Weight: 113 kg

DRUGS (1)
  1. MIRENA [Suspect]
     Indication: CONTRACEPTION
     Route: 015
     Dates: start: 20071114, end: 20081202

REACTIONS (6)
  - AMENORRHOEA [None]
  - MALAISE [None]
  - MIGRAINE [None]
  - MOOD ALTERED [None]
  - PELVIC PAIN [None]
  - PREMENSTRUAL SYNDROME [None]
